FAERS Safety Report 7557779-X (Version None)
Quarter: 2011Q2

REPORT INFORMATION
  Report Type: 
  Country: None (occurrence: None)
  Receive Date: 20110620
  Receipt Date: 20110609
  Transmission Date: 20111010
  Serious: Yes (Life-Threatening, Hospitalization)
  Sender: FDA-Public Use
  Company Number: US-JNJFOC-20110409364

PATIENT
  Sex: Male

DRUGS (4)
  1. STELARA [Suspect]
     Route: 058
     Dates: start: 20100825
  2. STELARA [Suspect]
     Route: 058
     Dates: start: 20110601
  3. STELARA [Suspect]
     Indication: PSORIASIS
     Route: 058
     Dates: start: 20110328
  4. STELARA [Suspect]
     Route: 058
     Dates: start: 20101213

REACTIONS (8)
  - DYSPNOEA [None]
  - STAPHYLOCOCCAL INFECTION [None]
  - VENTRICULAR TACHYCARDIA [None]
  - MYOCARDIAL ISCHAEMIA [None]
  - URINARY RETENTION [None]
  - CHEST PAIN [None]
  - IMPLANT SITE INFECTION [None]
  - MYOCARDIAL INFARCTION [None]
